FAERS Safety Report 14947743 (Version 1)
Quarter: 2018Q2

REPORT INFORMATION
  Report Type: Spontaneous
  Country: DE (occurrence: DE)
  Receive Date: 20180529
  Receipt Date: 20180529
  Transmission Date: 20180711
  Serious: Yes (Hospitalization)
  Sender: FDA-Public Use
  Company Number: DE-ANIPHARMA-2018-DE-000097

PATIENT
  Age: 74 Year
  Sex: Female
  Weight: 87 kg

DRUGS (11)
  1. PANTOPRAZOLE [Concomitant]
     Active Substance: PANTOPRAZOLE
     Dosage: 20 MG, 1-0-0-0
     Route: 065
  2. SERTRALINE [Suspect]
     Active Substance: SERTRALINE HYDROCHLORIDE
     Dosage: 100 MG, 1-0-0-0
     Route: 065
  3. ALLOPURINOL. [Concomitant]
     Active Substance: ALLOPURINOL
     Dosage: 100 MG, 1-0-0-0
     Route: 065
  4. CANDESARTAN CILEXETIL. [Suspect]
     Active Substance: CANDESARTAN CILEXETIL
     Dosage: 32 MG, 1-0-0-0
     Route: 048
  5. AMITRIPTYLINE [Concomitant]
     Active Substance: AMITRIPTYLINE
     Dosage: 50 MG, 0-0-0-1
     Route: 065
  6. URAPIDIL [Suspect]
     Active Substance: URAPIDIL
     Dosage: 60 MG, 1-0-1-1
     Route: 065
  7. TORASEMIDE [Suspect]
     Active Substance: TORSEMIDE
     Dosage: 2.5 MG, 1-0-0-0
     Route: 065
  8. NITRENDIPINE [Suspect]
     Active Substance: NITRENDIPINE
     Dosage: 10 MG, 0.5-0-1-0
     Route: 065
  9. SIMVASTATIN. [Concomitant]
     Active Substance: SIMVASTATIN
     Dosage: 20 MG, 0-0-1-0
     Route: 065
  10. METOPROLOL. [Suspect]
     Active Substance: METOPROLOL
     Route: 048
  11. LETROZOLE. [Concomitant]
     Active Substance: LETROZOLE
     Dosage: 2.5 MG, 0-1-0-0
     Route: 065

REACTIONS (2)
  - Presyncope [Unknown]
  - Bradycardia [Unknown]
